FAERS Safety Report 17084777 (Version 1)
Quarter: 2019Q4

REPORT INFORMATION
  Report Type: Spontaneous
  Country: VE (occurrence: VE)
  Receive Date: 20191127
  Receipt Date: 20191127
  Transmission Date: 20200122
  Serious: Yes (Hospitalization)
  Sender: FDA-Public Use
  Company Number: PHHY2019VE200424

PATIENT
  Sex: Male
  Weight: 67 kg

DRUGS (1)
  1. GLIVEC [Suspect]
     Active Substance: IMATINIB MESYLATE
     Indication: CHRONIC MYELOID LEUKAEMIA
     Dosage: 400 MG, QD (4OF 100 MG)
     Route: 065
     Dates: start: 20181020

REACTIONS (6)
  - Platelet dysfunction [Unknown]
  - Limb mass [Unknown]
  - Fungal infection [Unknown]
  - Skin lesion [Unknown]
  - Scrotal haematoma [Unknown]
  - Dry skin [Unknown]
